FAERS Safety Report 4333698-7 (Version None)
Quarter: 2004Q2

REPORT INFORMATION
  Report Type: 
  Country: None (occurrence: None)
  Receive Date: 20040406
  Receipt Date: 20040406
  Transmission Date: 20050107
  Serious: Yes (Death)
  Sender: FDA-Public Use
  Company Number: None

PATIENT
  Age: 69 Year
  Sex: Male
  Weight: 86.1834 kg

DRUGS (17)
  1. ETOPOSIDE [Suspect]
     Indication: SMALL CELL LUNG CANCER STAGE UNSPECIFIED
     Dosage: 100 MG/M2 DAYS 1-3 Q 3 WKS X 4
     Dates: start: 20040224
  2. ETOPOSIDE [Suspect]
     Indication: SMALL CELL LUNG CANCER STAGE UNSPECIFIED
     Dosage: 100 MG/M2 DAYS 1-3 Q 3 WKS X 4
     Dates: start: 20040224
  3. ETOPOSIDE [Suspect]
     Indication: SMALL CELL LUNG CANCER STAGE UNSPECIFIED
     Dosage: 100 MG/M2 DAYS 1-3 Q 3 WKS X 4
     Dates: start: 20040225
  4. ETOPOSIDE [Suspect]
     Indication: SMALL CELL LUNG CANCER STAGE UNSPECIFIED
     Dosage: 100 MG/M2 DAYS 1-3 Q 3 WKS X 4
     Dates: start: 20040315
  5. ETOPOSIDE [Suspect]
     Indication: SMALL CELL LUNG CANCER STAGE UNSPECIFIED
     Dosage: 100 MG/M2 DAYS 1-3 Q 3 WKS X 4
     Dates: start: 20040316
  6. ETOPOSIDE [Suspect]
     Indication: SMALL CELL LUNG CANCER STAGE UNSPECIFIED
     Dosage: 100 MG/M2 DAYS 1-3 Q 3 WKS X 4
     Dates: start: 20040317
  7. CISPLATIN [Suspect]
     Dosage: 80 MG/M2 Q 3 WKS X 4
     Dates: start: 20040223
  8. CISPLATIN [Suspect]
     Dosage: 80 MG/M2 Q 3 WKS X 4
     Dates: start: 20040315
  9. AMARYL [Concomitant]
  10. FLOMAX [Concomitant]
  11. PROSCAR [Concomitant]
  12. VICODIN [Concomitant]
  13. ARANESP [Concomitant]
  14. KYTRIL [Concomitant]
  15. DECADRON [Concomitant]
  16. ALOXI [Concomitant]
  17. MANNITOL [Concomitant]

REACTIONS (6)
  - CYANOSIS [None]
  - PNEUMONIA [None]
  - RESPIRATORY FAILURE [None]
  - RESTLESSNESS [None]
  - URINE OUTPUT DECREASED [None]
  - WHITE BLOOD CELL COUNT DECREASED [None]
